FAERS Safety Report 5442113-1 (Version None)
Quarter: 2007Q3

REPORT INFORMATION
  Report Type: 
  Country: None (occurrence: None)
  Receive Date: 20070904
  Receipt Date: 20070823
  Transmission Date: 20080115
  Serious: Yes (Other)
  Sender: FDA-Public Use
  Company Number: BR-ROCHE-505093

PATIENT
  Age: 28 Year
  Sex: Female
  Weight: 48 kg

DRUGS (3)
  1. ISOTRETINOIN [Suspect]
     Indication: ACNE
     Route: 048
     Dates: start: 20070201, end: 20070817
  2. COLLYRIUM [Concomitant]
     Route: 065
  3. UNSPECIFIED DRUG [Concomitant]
     Indication: SINUSITIS
     Dates: start: 20070801, end: 20070801

REACTIONS (11)
  - ARTHRALGIA [None]
  - BLINDNESS [None]
  - DERMATITIS ALLERGIC [None]
  - DRY EYE [None]
  - DRY MOUTH [None]
  - JOINT SWELLING [None]
  - MYOPIA [None]
  - PRURITUS [None]
  - SKIN FRAGILITY [None]
  - SKIN IRRITATION [None]
  - VISION BLURRED [None]
